FAERS Safety Report 4840189-3 (Version None)
Quarter: 2005Q4

REPORT INFORMATION
  Report Type: 
  Country: None (occurrence: None)
  Receive Date: 20051125
  Receipt Date: 20051115
  Transmission Date: 20060501
  Serious: Yes (Hospitalization)
  Sender: FDA-Public Use
  Company Number: 219226

PATIENT
  Age: 42 Year
  Sex: Male

DRUGS (3)
  1. RAPTIVA [Suspect]
     Indication: PSORIASIS
     Dosage: 89 MG, 1/WEEK, SUBCUTANEOUS
     Route: 058
     Dates: start: 20050808, end: 20051018
  2. DIOVAN [Concomitant]
  3. CRESTOR [Concomitant]

REACTIONS (5)
  - CSF CELL COUNT INCREASED [None]
  - CSF PROTEIN INCREASED [None]
  - HERPES ZOSTER [None]
  - MENINGITIS ASEPTIC [None]
  - MENINGITIS VIRAL [None]
